FAERS Safety Report 8471028-X (Version None)
Quarter: 2012Q2

REPORT INFORMATION
  Report Type: 
  Country: None (occurrence: None)
  Receive Date: 20120323
  Receipt Date: 20111121
  Transmission Date: 20120825
  Serious: Yes (Hospitalization)
  Sender: FDA-Public Use
  Company Number: 163-21880-11110710

PATIENT
  Age: 81 Year
  Sex: Female

DRUGS (6)
  1. REVLIMID [Suspect]
  2. REVLIMID [Suspect]
     Indication: MULTIPLE MYELOMA
     Dosage: 10 MG, DAILY X 21 DAYS ON, 7 DAYS OFF, PO
     Route: 048
     Dates: start: 20110511
  3. ASPIRIN [Concomitant]
  4. VERAPAMIL [Concomitant]
  5. AVAPRO [Concomitant]
  6. LASIX [Concomitant]

REACTIONS (1)
  - THROMBOSIS [None]
